FAERS Safety Report 9375681 (Version 2)
Quarter: 2013Q3

REPORT INFORMATION
  Report Type: Spontaneous
  Country: US (occurrence: US)
  Receive Date: 20130628
  Receipt Date: 20130716
  Transmission Date: 20140515
  Serious: Yes (Hospitalization, Other)
  Sender: FDA-Public Use
  Company Number: US-BAXTER-2013BAX024107

PATIENT
  Age: 45 Year
  Sex: Female

DRUGS (2)
  1. DIANEAL LOW CALCIUM (ULTRABAG) [Suspect]
     Indication: PERITONEAL DIALYSIS
     Route: 033
  2. DIANEAL LOW CALCIUM (ULTRABAG) [Suspect]
     Indication: PERITONEAL DIALYSIS
     Route: 033

REACTIONS (8)
  - Hernia [Unknown]
  - Bacterial infection [Recovered/Resolved]
  - Blood pressure decreased [Recovered/Resolved]
  - Blood pressure systolic increased [Unknown]
  - Catheter site infection [Recovered/Resolved]
  - Dehydration [Recovered/Resolved]
  - Tenderness [Recovering/Resolving]
  - Nausea [Recovered/Resolved]
